FAERS Safety Report 6771477-1 (Version None)
Quarter: 2010Q2

REPORT INFORMATION
  Report Type: 
  Country: None (occurrence: None)
  Receive Date: 20100611
  Receipt Date: 20100609
  Transmission Date: 20101027
  Serious: Yes (Other)
  Sender: FDA-Public Use
  Company Number: 2009SP017467

PATIENT
  Age: 52 Year
  Sex: Male

DRUGS (7)
  1. TEMODAL [Suspect]
     Indication: MEDULLOBLASTOMA RECURRENT
     Dosage: 320 MG/KG;QD;PO
     Route: 048
     Dates: start: 20090201, end: 20090727
  2. OKIMUS (QUININE, HAWTHORN) (QUININE AND DERIVATIVES) [Suspect]
     Indication: MUSCLE SPASMS
     Dosage: PO
     Route: 048
     Dates: start: 20090711, end: 20090713
  3. ALKONATREM (DEMECLOCYCLINE) [Suspect]
     Indication: DRUG USE FOR UNKNOWN INDICATION
     Dosage: 150 MG; PO
     Route: 048
  4. NAVOBAN (TROPISETRON HYDROCHLORIDE) [Suspect]
     Indication: DRUG USE FOR UNKNOWN INDICATION
     Dosage: PO
     Route: 048
     Dates: start: 20090201, end: 20090727
  5. PREDNISOLONE [Suspect]
     Indication: DRUG USE FOR UNKNOWN INDICATION
     Dosage: PO
     Route: 048
     Dates: start: 20090713, end: 20090720
  6. CETIRIZIN DICHLORHYDRATE (CETIRIZINE HYDROCHLORIDE) [Suspect]
     Indication: HYPERSENSITIVITY
     Dates: start: 20090713, end: 20090720
  7. TANGANIL [Concomitant]

REACTIONS (3)
  - CYTOLYTIC HEPATITIS [None]
  - HEPATOTOXICITY [None]
  - MUSCLE SPASMS [None]
